FAERS Safety Report 5823012-X (Version None)
Quarter: 2008Q3

REPORT INFORMATION
  Report Type: 
  Country: None (occurrence: None)
  Receive Date: 20080725
  Receipt Date: 20080715
  Transmission Date: 20090109
  Serious: Yes (Hospitalization)
  Sender: FDA-Public Use
  Company Number: B0530493A

PATIENT
  Age: 65 Year
  Sex: Male

DRUGS (3)
  1. OMEGA-3-ACID ETHYL ESTERS [Suspect]
     Dosage: 2G PER DAY
     Route: 065
  2. TRAZODONE HCL [Suspect]
     Dosage: 50MG PER DAY
     Route: 065
  3. WARFARIN SODIUM [Suspect]
     Dosage: 5MG PER DAY
     Route: 065

REACTIONS (4)
  - DRUG INTERACTION [None]
  - INTERNATIONAL NORMALISED RATIO INCREASED [None]
  - OFF LABEL USE [None]
  - PROTHROMBIN TIME PROLONGED [None]
